FAERS Safety Report 19499133 (Version 1)
Quarter: 2021Q3

REPORT INFORMATION
  Report Type: Spontaneous
  Country: PL (occurrence: PL)
  Receive Date: 20210707
  Receipt Date: 20210707
  Transmission Date: 20211014
  Serious: Yes (Hospitalization)
  Sender: FDA-Public Use
  Company Number: PL-CELLTRION INC.-2021PL008869

PATIENT

DRUGS (2)
  1. TRASTUZUMAB (UNKNOWN) [Suspect]
     Active Substance: TRASTUZUMAB
     Indication: HER2 POSITIVE BREAST CANCER
     Dosage: UNKNOWN
     Route: 065
  2. PACLITAXEL. [Concomitant]
     Active Substance: PACLITAXEL
     Indication: HER2 POSITIVE BREAST CANCER
     Dosage: UNKNOWN
     Route: 065

REACTIONS (3)
  - Cardiac failure [Recovering/Resolving]
  - Oedema peripheral [Unknown]
  - Dyspnoea at rest [Unknown]
